FAERS Safety Report 4682751-7 (Version None)
Quarter: 2005Q2

REPORT INFORMATION
  Report Type: 
  Country: None (occurrence: None)
  Receive Date: 20050602
  Receipt Date: 20050418
  Transmission Date: 20051028
  Serious: No
  Sender: FDA-Public Use
  Company Number: USA050495939

PATIENT
  Sex: Male

DRUGS (4)
  1. CYMBALTA [Suspect]
  2. MORPHINE SULFATE [Concomitant]
  3. XANAX (ALPRAZOLAM DUM) [Concomitant]
  4. PERCOCET [Concomitant]

REACTIONS (1)
  - IMPAIRED DRIVING ABILITY [None]
